FAERS Safety Report 10454378 (Version 2)
Quarter: 2014Q4

REPORT INFORMATION
  Report Type: Spontaneous
  Country: US (occurrence: US)
  Receive Date: 20140915
  Receipt Date: 20141006
  Transmission Date: 20150528
  Serious: Yes (Hospitalization)
  Sender: FDA-Public Use
  Company Number: US-PFIZER INC-2014254983

PATIENT
  Age: 66 Year
  Sex: Female
  Weight: 52.15 kg

DRUGS (2)
  1. PRAZOSIN HCL [Suspect]
     Active Substance: PRAZOSIN HYDROCHLORIDE
     Indication: RAYNAUD^S PHENOMENON
     Dosage: 1 MG, 2X/DAY
     Route: 048
     Dates: start: 2012, end: 2013
  2. MINIPRESS [Suspect]
     Active Substance: PRAZOSIN HYDROCHLORIDE
     Indication: RAYNAUD^S PHENOMENON
     Dosage: 1 MG, 2X/DAY
     Route: 048
     Dates: end: 201409

REACTIONS (3)
  - Hip fracture [Unknown]
  - Peripheral coldness [Unknown]
  - Product use issue [Unknown]

NARRATIVE: CASE EVENT DATE: 201310
